FAERS Safety Report 9628031 (Version 1)
Quarter: 2013Q4

REPORT INFORMATION
  Report Type: Spontaneous
  Country: JP (occurrence: JP)
  Receive Date: 20131016
  Receipt Date: 20131016
  Transmission Date: 20140711
  Serious: Yes (Other)
  Sender: FDA-Public Use
  Company Number: JP-009507513-1310JPN005460

PATIENT
  Age: 53 Year
  Sex: Female

DRUGS (2)
  1. PEGINTRON [Suspect]
     Dosage: UNK
     Route: 058
     Dates: start: 201206, end: 201208
  2. REBETOL [Suspect]
     Dosage: UNK
     Route: 048
     Dates: start: 201206, end: 201208

REACTIONS (1)
  - Drug eruption [Unknown]
